FAERS Safety Report 23723035 (Version 1)
Quarter: 2024Q2

REPORT INFORMATION
  Report Type: Spontaneous
  Country: BR (occurrence: BR)
  Receive Date: 20240409
  Receipt Date: 20240409
  Transmission Date: 20240716
  Serious: Yes (Other)
  Sender: FDA-Public Use
  Company Number: BR-002147023-NVSC2023BR136796

PATIENT
  Age: 52 Year
  Sex: Female

DRUGS (9)
  1. ANASTROZOLE [Suspect]
     Active Substance: ANASTROZOLE
     Indication: Hormone therapy
     Dosage: UNK
     Route: 065
  2. KISQALI [Suspect]
     Active Substance: RIBOCICLIB
     Dosage: 2 DOSAGE FORM (THIRD CYCLE)
     Route: 065
     Dates: start: 20230630
  3. KISQALI [Suspect]
     Active Substance: RIBOCICLIB
     Dosage: UNK
     Route: 065
  4. KISQALI [Suspect]
     Active Substance: RIBOCICLIB
     Dosage: UNK
     Route: 065
     Dates: end: 20240330
  5. KISQALI [Suspect]
     Active Substance: RIBOCICLIB
     Dosage: UNK
     Route: 065
  6. KISQALI [Suspect]
     Active Substance: RIBOCICLIB
     Dosage: 3 DOSAGE FORM, QD
     Route: 065
  7. KISQALI [Suspect]
     Active Substance: RIBOCICLIB
     Indication: Breast cancer female
     Dosage: UNK
     Route: 065
  8. KISQALI [Suspect]
     Active Substance: RIBOCICLIB
     Dosage: 2 DOSAGE FORM, QD
     Route: 065
  9. KISQALI [Suspect]
     Active Substance: RIBOCICLIB
     Dosage: UNK
     Route: 065

REACTIONS (27)
  - Metastases to bone [Unknown]
  - Concomitant disease aggravated [Unknown]
  - Atrophy [Recovered/Resolved]
  - Gait inability [Recovered/Resolved]
  - Illness [Recovered/Resolved]
  - Intervertebral disc protrusion [Unknown]
  - Dry skin [Recovering/Resolving]
  - Platelet count decreased [Recovered/Resolved]
  - Nausea [Recovered/Resolved]
  - Cough [Not Recovered/Not Resolved]
  - Nausea [Recovering/Resolving]
  - Spinal deformity [Unknown]
  - Asthenia [Recovered/Resolved]
  - Eating disorder [Recovered/Resolved]
  - Weight increased [Unknown]
  - Muscle spasms [Recovering/Resolving]
  - Hypoaesthesia [Recovering/Resolving]
  - Limb discomfort [Unknown]
  - Insomnia [Unknown]
  - Adverse drug reaction [Unknown]
  - Decreased immune responsiveness [Recovered/Resolved]
  - Lip dry [Recovering/Resolving]
  - Dry throat [Not Recovered/Not Resolved]
  - Sluggishness [Recovered/Resolved]
  - Throat clearing [Not Recovered/Not Resolved]
  - Vulvovaginal dryness [Not Recovered/Not Resolved]
  - Visual impairment [Unknown]

NARRATIVE: CASE EVENT DATE: 20230501
